FAERS Safety Report 16775345 (Version 2)
Quarter: 2019Q4

REPORT INFORMATION
  Report Type: Report from Study
  Country: HN (occurrence: HN)
  Receive Date: 20190905
  Receipt Date: 20191001
  Transmission Date: 20200122
  Serious: Yes (Death, Life-Threatening, Hospitalization, Other)
  Sender: FDA-Public Use
  Company Number: PHHY2019HN145905

PATIENT
  Age: 64 Year
  Sex: Female
  Weight: 50.45 kg

DRUGS (5)
  1. GLIVEC [Suspect]
     Active Substance: IMATINIB MESYLATE
     Dosage: 100 MG, QD
     Route: 048
     Dates: start: 20190618
  2. METFORMIN [Concomitant]
     Active Substance: METFORMIN HYDROCHLORIDE
     Indication: PRODUCT USED FOR UNKNOWN INDICATION
     Route: 065
  3. GLIVEC [Suspect]
     Active Substance: IMATINIB MESYLATE
     Indication: CHRONIC MYELOID LEUKAEMIA
     Dosage: 400 MG, QD
     Route: 048
     Dates: start: 20190218
  4. GLIVEC [Suspect]
     Active Substance: IMATINIB MESYLATE
     Dosage: 200 MG, UNK
     Route: 065
  5. EUTIROX [Concomitant]
     Active Substance: LEVOTHYROXINE SODIUM
     Indication: PRODUCT USED FOR UNKNOWN INDICATION
     Dosage: 25 MG, UNK
     Route: 065

REACTIONS (14)
  - Muscular weakness [Fatal]
  - Red blood cell count decreased [Unknown]
  - Blood glucose increased [Unknown]
  - Pancytopenia [Fatal]
  - Haematology test abnormal [Unknown]
  - Haematocrit decreased [Unknown]
  - Loss of consciousness [Fatal]
  - White blood cell count decreased [Unknown]
  - Hypoaesthesia [Fatal]
  - Cytogenetic analysis abnormal [Unknown]
  - Pyrexia [Fatal]
  - Gastrointestinal haemorrhage [Fatal]
  - Platelet count decreased [Unknown]
  - Haemoglobin decreased [Unknown]

NARRATIVE: CASE EVENT DATE: 20190618
